FAERS Safety Report 14322593 (Version 3)
Quarter: 2019Q2

REPORT INFORMATION
  Report Type: Report from Study
  Country: AT (occurrence: AT)
  Receive Date: 20171225
  Receipt Date: 20190405
  Transmission Date: 20190711
  Serious: Yes (Death, Other)
  Sender: FDA-Public Use
  Company Number: PHHY2016AT151733

PATIENT
  Age: 73 Year
  Sex: Female
  Weight: 65 kg

DRUGS (8)
  1. MEKINIST [Suspect]
     Active Substance: TRAMETINIB DIMETHYL SULFOXIDE
     Dosage: UNK
     Route: 048
     Dates: start: 201512, end: 201601
  2. MEKINIST [Suspect]
     Active Substance: TRAMETINIB DIMETHYL SULFOXIDE
     Dosage: 0.5 MG, UNK
     Route: 048
     Dates: start: 20160906
  3. DABRAFENIB [Suspect]
     Active Substance: DABRAFENIB
     Dosage: 300 MG, UNK
     Route: 048
     Dates: start: 20160906
  4. MEKINIST [Suspect]
     Active Substance: TRAMETINIB DIMETHYL SULFOXIDE
     Indication: MALIGNANT MELANOMA
     Dosage: 0.5 MG, UNK
     Route: 048
     Dates: start: 201504
  5. DABRAFENIB [Suspect]
     Active Substance: DABRAFENIB
     Indication: MALIGNANT MELANOMA
     Dosage: UNK
     Route: 048
     Dates: start: 201504
  6. DABRAFENIB [Suspect]
     Active Substance: DABRAFENIB
     Dosage: 300 MG, UNK
     Route: 048
     Dates: start: 20161124, end: 20161228
  7. DABRAFENIB [Suspect]
     Active Substance: DABRAFENIB
     Dosage: UNK
     Route: 048
     Dates: start: 201512, end: 201601
  8. MEKINIST [Suspect]
     Active Substance: TRAMETINIB DIMETHYL SULFOXIDE
     Dosage: 0.5 MG, UNK
     Route: 048
     Dates: start: 20161124, end: 20161228

REACTIONS (12)
  - Respiratory tract infection [Recovered/Resolved]
  - Hypertension [Unknown]
  - Respiratory tract infection [Recovered/Resolved]
  - Depression [Unknown]
  - Hypercalcaemia [Unknown]
  - Malignant melanoma [Fatal]
  - Open angle glaucoma [Recovered/Resolved]
  - Osteoporosis [Unknown]
  - Blood creatinine increased [Not Recovered/Not Resolved]
  - Malignant neoplasm progression [Fatal]
  - C-reactive protein increased [Unknown]
  - Micturition urgency [Unknown]

NARRATIVE: CASE EVENT DATE: 2016
